FAERS Safety Report 23959710 (Version 1)
Quarter: 2024Q2

REPORT INFORMATION
  Report Type: Spontaneous
  Country: US (occurrence: US)
  Receive Date: 20240611
  Receipt Date: 20240611
  Transmission Date: 20240716
  Serious: Yes (Other)
  Sender: FDA-Public Use
  Company Number: US-AMGEN-USASP2024111785

PATIENT
  Age: 39 Year
  Sex: Female

DRUGS (2)
  1. PREDNISONE [Suspect]
     Active Substance: PREDNISONE
     Indication: Immunoglobulin G4 related disease
     Dosage: UNK
     Route: 048
  2. PREDNISONE [Suspect]
     Active Substance: PREDNISONE
     Dosage: UNK (TAPERING)
     Route: 048

REACTIONS (1)
  - Immunoglobulin G4 related disease [Recovering/Resolving]
